FAERS Safety Report 20829604 (Version 6)
Quarter: 2022Q4

REPORT INFORMATION
  Report Type: Other
  Country: US (occurrence: None)
  Receive Date: 20220513
  Receipt Date: 20221031
  Transmission Date: 20230113
  Serious: Yes (Hospitalization, Other)
  Sender: FDA-Public Use
  Company Number: US-ROCHE-2607086

PATIENT
  Age: 70 Year
  Sex: Female
  Weight: 79.904 kg

DRUGS (14)
  1. OCREVUS [Suspect]
     Active Substance: OCRELIZUMAB
     Indication: Relapsing-remitting multiple sclerosis
     Route: 042
     Dates: start: 2018
  2. OCREVUS [Suspect]
     Active Substance: OCRELIZUMAB
     Dosage: DATE OF TREATMENT: 04/JUN/2020 AND 21/JUN/2020?PRESCRIBED AS 300MG LV INFUSE WITH 300MG IV + 2 WEEKS
     Route: 042
     Dates: start: 20200520
  3. OCREVUS [Suspect]
     Active Substance: OCRELIZUMAB
     Dosage: 04-JUNE-2020 18-NOV-2020 13-MAY-2021 21-MAY-2020, 13/MAY/2021,  23-?NOV-2021,
     Route: 042
     Dates: start: 20220506
  4. SOLU-MEDROL [Concomitant]
     Active Substance: METHYLPREDNISOLONE SODIUM SUCCINATE
     Indication: Hypersensitivity
     Dosage: AS REQUIRED
  5. LORTAB [Concomitant]
     Active Substance: ACETAMINOPHEN\HYDROCODONE BITARTRATE
     Indication: Pain
     Dosage: 10/325 ;ONGOING: YES
     Route: 048
     Dates: start: 2016
  6. ZOLPIDEM [Concomitant]
     Active Substance: ZOLPIDEM TARTRATE
     Indication: Insomnia
     Dosage: TAKE 1 MORE IF AWOKEN AT NIGHT WITH PAIN ;ONGOING
     Route: 048
     Dates: start: 2014
  7. MEMANTINE [Concomitant]
     Active Substance: MEMANTINE
     Indication: Multiple sclerosis
     Route: 048
     Dates: start: 202004
  8. MEMANTINE [Concomitant]
     Active Substance: MEMANTINE
     Indication: Cognitive disorder
  9. MEMANTINE [Concomitant]
     Active Substance: MEMANTINE
     Indication: Memory impairment
  10. MEMANTINE [Concomitant]
     Active Substance: MEMANTINE
     Indication: Central nervous system lesion
  11. BENADRYL [Concomitant]
     Active Substance: DIPHENHYDRAMINE HYDROCHLORIDE
     Route: 042
  12. NORCO [Concomitant]
     Active Substance: ACETAMINOPHEN\HYDROCODONE BITARTRATE
  13. VENLAFAXINE HCL [Concomitant]
     Active Substance: VENLAFAXINE HYDROCHLORIDE
  14. METOPROLOL [Concomitant]
     Active Substance: METOPROLOL
     Indication: Hypertension
     Route: 048
     Dates: start: 20200210

REACTIONS (29)
  - Hiatus hernia [Recovered/Resolved]
  - Blindness [Unknown]
  - Blindness unilateral [Unknown]
  - Multiple sclerosis [Unknown]
  - Injection site extravasation [Recovered/Resolved]
  - Oropharyngeal pain [Recovered/Resolved]
  - Cough [Recovered/Resolved]
  - Dyspnoea [Recovered/Resolved]
  - Weight increased [Not Recovered/Not Resolved]
  - Pyrexia [Recovered/Resolved]
  - Pruritus [Recovered/Resolved]
  - Headache [Recovered/Resolved]
  - Eye pain [Not Recovered/Not Resolved]
  - Pain in extremity [Not Recovered/Not Resolved]
  - Impaired driving ability [Unknown]
  - Speech disorder [Unknown]
  - Visual impairment [Not Recovered/Not Resolved]
  - Hypoaesthesia [Not Recovered/Not Resolved]
  - Gait disturbance [Not Recovered/Not Resolved]
  - Speech disorder [Not Recovered/Not Resolved]
  - Vision blurred [Not Recovered/Not Resolved]
  - Feeling jittery [Unknown]
  - Limb mass [Not Recovered/Not Resolved]
  - Drug ineffective [Unknown]
  - Paraesthesia [Unknown]
  - Peripheral swelling [Unknown]
  - Poor venous access [Not Recovered/Not Resolved]
  - Fall [Unknown]
  - Limb mass [Recovered/Resolved]

NARRATIVE: CASE EVENT DATE: 20200520
